FAERS Safety Report 8598108-2 (Version None)
Quarter: 2012Q3

REPORT INFORMATION
  Report Type: 
  Country: None (occurrence: None)
  Receive Date: 20120816
  Receipt Date: 20120813
  Transmission Date: 20120928
  Serious: Yes (Other)
  Sender: FDA-Public Use
  Company Number: US-AMGEN-USASP2012043085

PATIENT
  Age: 78 Year
  Sex: Female
  Weight: 67.12 kg

DRUGS (2)
  1. SYNTHROID [Concomitant]
     Dosage: 75 MG, QD
     Route: 048
  2. PROLIA [Suspect]
     Indication: OSTEOPOROSIS POSTMENOPAUSAL
     Dosage: 60 MG, Q6MO
     Dates: start: 20120110

REACTIONS (5)
  - VISUAL ACUITY REDUCED [None]
  - CORNEAL INFECTION [None]
  - POST PROCEDURAL INFECTION [None]
  - EYE INFECTION FUNGAL [None]
  - CATARACT [None]
